FAERS Safety Report 8821451 (Version 1)
Quarter: 2012Q4

REPORT INFORMATION
  Report Type: 
  Country: US (occurrence: US)
  Receive Date: 20121002
  Receipt Date: 20121002
  Transmission Date: 20130627
  Serious: No
  Sender: FDA-Public Use
  Company Number: US-ASTRAZENECA-2012SE73902

PATIENT
  Sex: Female

DRUGS (2)
  1. SYMBICORT PMDI [Suspect]
     Indication: ASTHMA
     Dosage: 160/4.5 MCG, two times a day
     Route: 055
  2. NASONEX [Concomitant]

REACTIONS (3)
  - Activities of daily living impaired [Unknown]
  - Drug ineffective [Unknown]
  - Asthma [Unknown]
